FAERS Safety Report 4734049-6 (Version None)
Quarter: 2005Q3

REPORT INFORMATION
  Report Type: 
  Country: None (occurrence: None)
  Receive Date: 20050801
  Receipt Date: 20041014
  Transmission Date: 20060218
  Serious: Yes (Life-Threatening, Hospitalization)
  Sender: FDA-Public Use
  Company Number: 209685

PATIENT
  Age: 69 Year
  Sex: Female
  Weight: 60.3 kg

DRUGS (1)
  1. HERCEPTIN [Suspect]
     Indication: BREAST CANCER
     Dosage: 241 MG, SINGLE, INTRAVENOUS
     Route: 042
     Dates: start: 20040303, end: 20040303

REACTIONS (1)
  - HYPERSENSITIVITY [None]
